FAERS Safety Report 11776809 (Version 1)
Quarter: 2015Q4

REPORT INFORMATION
  Report Type: Spontaneous
  Country: US (occurrence: None)
  Receive Date: 20151124
  Receipt Date: 20151124
  Transmission Date: 20160304
  Serious: Yes (Hospitalization)
  Sender: FDA-Public Use
  Company Number: None

PATIENT
  Age: 25 Year
  Sex: Female
  Weight: 83.92 kg

DRUGS (9)
  1. JOLIVETTE [Concomitant]
     Active Substance: NORETHINDRONE
  2. TOPAMAX [Suspect]
     Active Substance: TOPIRAMATE
     Indication: SEIZURE
     Dosage: 2 PILLS
     Route: 048
     Dates: start: 20151011, end: 20151123
  3. FOLIC ACID. [Concomitant]
     Active Substance: FOLIC ACID
  4. BIOTIN [Concomitant]
     Active Substance: BIOTIN
  5. IRON [Concomitant]
     Active Substance: IRON
  6. SYNTHROID [Concomitant]
     Active Substance: LEVOTHYROXINE SODIUM
  7. MAGNESIUM [Concomitant]
     Active Substance: MAGNESIUM
  8. TOPAMAX [Concomitant]
     Active Substance: TOPIRAMATE
  9. TRILEPTAL [Concomitant]
     Active Substance: OXCARBAZEPINE

REACTIONS (3)
  - Abdominal pain upper [None]
  - Cholecystitis acute [None]
  - Syncope [None]

NARRATIVE: CASE EVENT DATE: 20151122
